FAERS Safety Report 13069351 (Version 2)
Quarter: 2017Q1

REPORT INFORMATION
  Report Type: Report from Study
  Country: DE (occurrence: DE)
  Receive Date: 20161228
  Receipt Date: 20170104
  Transmission Date: 20170428
  Serious: Yes (Death, Hospitalization, Other)
  Sender: FDA-Public Use
  Company Number: DE-BRISTOL-MYERS SQUIBB COMPANY-BMS-2016-110196

PATIENT
  Age: 47 Year
  Sex: Male
  Weight: 69.2 kg

DRUGS (1)
  1. NIVOLUMAB [Suspect]
     Active Substance: NIVOLUMAB
     Indication: HEPATOCELLULAR CARCINOMA
     Dosage: 240 MG, Q2WK
     Route: 042
     Dates: start: 20160808, end: 20160920

REACTIONS (2)
  - Hyperkalaemia [Fatal]
  - Sepsis [Fatal]

NARRATIVE: CASE EVENT DATE: 20161018
